FAERS Safety Report 6358489-7 (Version None)
Quarter: 2009Q3

REPORT INFORMATION
  Report Type: 
  Country: None (occurrence: None)
  Receive Date: 20090916
  Receipt Date: 20080806
  Transmission Date: 20100115
  Serious: No
  Sender: FDA-Public Use
  Company Number: US-AMGEN-KDL299788

PATIENT
  Sex: Female

DRUGS (6)
  1. NEUPOGEN [Suspect]
     Indication: NEUTROPENIA
     Route: 058
     Dates: start: 20080601
  2. INTERFERON [Concomitant]
  3. ASACOL [Concomitant]
  4. ATENOLOL [Concomitant]
  5. COPEGUS [Concomitant]
  6. PEGASYS [Concomitant]

REACTIONS (2)
  - MEMORY IMPAIRMENT [None]
  - WHITE BLOOD CELL COUNT DECREASED [None]
